FAERS Safety Report 20872417 (Version 5)
Quarter: 2022Q3

REPORT INFORMATION
  Report Type: Report from Study
  Country: CA (occurrence: CA)
  Receive Date: 20220525
  Receipt Date: 20220720
  Transmission Date: 20221026
  Serious: Yes (Hospitalization, Other)
  Sender: FDA-Public Use
  Company Number: CA-BoehringerIngelheim-2022-BI-106746

PATIENT
  Age: 76 Year
  Sex: Male
  Weight: 75.2 kg

DRUGS (4)
  1. OFEV [Suspect]
     Active Substance: NINTEDANIB
     Indication: Idiopathic pulmonary fibrosis
     Route: 048
     Dates: start: 20220106
  2. OFEV [Suspect]
     Active Substance: NINTEDANIB
     Route: 048
  3. PREDNISONE [Suspect]
     Active Substance: PREDNISONE
     Indication: Product used for unknown indication
  4. FUROSEMIDE [Concomitant]
     Active Substance: FUROSEMIDE
     Indication: Product used for unknown indication

REACTIONS (32)
  - Hypertension [Not Recovered/Not Resolved]
  - Blood potassium decreased [Not Recovered/Not Resolved]
  - Renal impairment [Not Recovered/Not Resolved]
  - Muscle spasms [Recovered/Resolved]
  - Syncope [Recovered/Resolved]
  - Mydriasis [Recovered/Resolved]
  - Fluid retention [Not Recovered/Not Resolved]
  - Hypertension [Not Recovered/Not Resolved]
  - Weight decreased [Recovered/Resolved]
  - Diarrhoea [Recovering/Resolving]
  - Tongue coated [Recovering/Resolving]
  - Diarrhoea [Recovered/Resolved]
  - Abdominal pain upper [Recovered/Resolved]
  - Taste disorder [Not Recovered/Not Resolved]
  - Pruritus [Not Recovered/Not Resolved]
  - Faeces discoloured [Not Recovered/Not Resolved]
  - Productive cough [Not Recovered/Not Resolved]
  - Decreased appetite [Not Recovered/Not Resolved]
  - Dysgeusia [Not Recovered/Not Resolved]
  - Pallor [Unknown]
  - Drug intolerance [Unknown]
  - Diarrhoea [Recovered/Resolved]
  - Urine output decreased [Unknown]
  - Loss of consciousness [Unknown]
  - Fall [Unknown]
  - Mass [Unknown]
  - Arthralgia [Unknown]
  - Post-traumatic neck syndrome [Unknown]
  - Skin abrasion [Unknown]
  - Abdominal pain [Unknown]
  - Feeling cold [Unknown]
  - Cardiovascular disorder [Unknown]

NARRATIVE: CASE EVENT DATE: 20220109
